FAERS Safety Report 5024456-9 (Version None)
Quarter: 2006Q2

REPORT INFORMATION
  Report Type: 
  Country: None (occurrence: None)
  Receive Date: 20060613
  Receipt Date: 20060209
  Transmission Date: 20061013
  Serious: Yes (Death, Life-Threatening, Hospitalization)
  Sender: FDA-Public Use
  Company Number: GB-AVENTIS-200610835EU

PATIENT
  Sex: Male

DRUGS (3)
  1. CLEXANE [Suspect]
     Indication: ACUTE CORONARY SYNDROME
     Route: 058
  2. CLOPIDOGREL [Suspect]
  3. ASPIRIN [Suspect]

REACTIONS (3)
  - HAEMATOMA [None]
  - SKIN LACERATION [None]
  - WOUND SEPSIS [None]
